FAERS Safety Report 9158079 (Version 1)
Quarter: 2013Q1

REPORT INFORMATION
  Report Type: Spontaneous
  Country: JP (occurrence: None)
  Receive Date: 20130222
  Receipt Date: 20130222
  Transmission Date: 20140127
  Serious: Yes (Life-Threatening, Hospitalization, Other)
  Sender: FDA-Public Use
  Company Number: 2009JP005047

PATIENT
  Age: 50 Year
  Sex: Female
  Weight: 54 kg

DRUGS (10)
  1. PROGRAF [Suspect]
     Indication: LUPUS NEPHRITIS
     Dosage: 3 MG, UNKNOWN/D, ORAL
     Route: 048
     Dates: start: 20100614, end: 20120603
  2. PREDNISOLONE [Suspect]
     Dosage: 5 MG, UNKNOWN/D, ORAL
     Route: 048
     Dates: end: 20100606
  3. ZYLORIC (ALLOPURINOL) PER ORAL NOS [Concomitant]
  4. ZYLORIC (ALLOPURINOL) PER ORAL NOS [Concomitant]
  5. AMLODIN (AMLODIPINE BESILATE) ORODISPERSIBLE CR TABLET [Concomitant]
  6. DEPAS (ETIZOLAM) PER ORAL NOS [Concomitant]
  7. EURODIN (ESTAZOLAM) PER ORAL NOS [Concomitant]
  8. TERNELIN (TIZANIDINE HYDROCHLORIDE) PER ORAL NOS [Concomitant]
  9. PREMINENT (HYDROCHLOROTHIAZIDE, LOSARTAN POTASSIUM) TABLET [Concomitant]
  10. FLUITRAN (TRICHLORMETHIAZIDE PER ORAL NOS [Concomitant]

REACTIONS (5)
  - Cholecystitis acute [None]
  - Pancreatitis acute [None]
  - Urinary tract infection [None]
  - Hypertension [None]
  - Cystitis [None]
